FAERS Safety Report 17093202 (Version 1)
Quarter: 2019Q4

REPORT INFORMATION
  Report Type: Spontaneous
  Country: CA (occurrence: CA)
  Receive Date: 20191129
  Receipt Date: 20191129
  Transmission Date: 20200122
  Serious: Yes (Other)
  Sender: FDA-Public Use
  Company Number: CA-TEVA-2019-CA-1142647

PATIENT
  Age: 85 Year
  Sex: Female

DRUGS (2)
  1. PREDNISONE. [Concomitant]
     Active Substance: PREDNISONE
  2. METHOTREXATE. [Suspect]
     Active Substance: METHOTREXATE
     Indication: RHEUMATOID ARTHRITIS
     Route: 058

REACTIONS (11)
  - Gait inability [Unknown]
  - Pain in extremity [Unknown]
  - Rash [Unknown]
  - Sinus congestion [Unknown]
  - Product use issue [Unknown]
  - Drug ineffective [Unknown]
  - Somnolence [Unknown]
  - Herpes zoster [Unknown]
  - Peripheral swelling [Unknown]
  - Fall [Unknown]
  - Malaise [Unknown]
